FAERS Safety Report 8634887 (Version 3)
Quarter: 2014Q2

REPORT INFORMATION
  Report Type: Spontaneous
  Country: US (occurrence: US)
  Receive Date: 20120626
  Receipt Date: 20140617
  Transmission Date: 20141212
  Serious: Yes (Other)
  Sender: FDA-Public Use
  Company Number: US-BAYER-2012-061603

PATIENT
  Age: 34 Year
  Sex: Female
  Weight: 79.82 kg

DRUGS (5)
  1. YAZ [Suspect]
     Indication: ACNE
  2. YAZ [Suspect]
     Indication: PREMENSTRUAL SYNDROME
  3. BEYAZ [Suspect]
  4. PAXIL [Concomitant]
     Dosage: 20 MG, UNK
     Route: 048
  5. NAPROXEN [Concomitant]

REACTIONS (5)
  - Pulmonary embolism [None]
  - Deep vein thrombosis [None]
  - Injury [None]
  - Pain [None]
  - Pain [None]
